FAERS Safety Report 25549717 (Version 1)
Quarter: 2025Q3

REPORT INFORMATION
  Report Type: Spontaneous
  Country: EU (occurrence: EU)
  Receive Date: 20250714
  Receipt Date: 20250714
  Transmission Date: 20251021
  Serious: Yes (Other)
  Sender: GE HEALTHCARE
  Company Number: None

PATIENT
  Age: 87 Year

DRUGS (3)
  1. OMNIPAQUE [Suspect]
     Active Substance: IOHEXOL
     Indication: Computerised tomogram
     Route: 042
     Dates: start: 20250521, end: 20250521
  2. FUROSEMIDE [Suspect]
     Active Substance: FUROSEMIDE
     Indication: Lung disorder
     Route: 042
     Dates: start: 20250522
  3. CEFTRIAXONE [Suspect]
     Active Substance: CEFTRIAXONE
     Indication: Lung disorder
     Route: 042
     Dates: start: 20250522

REACTIONS (2)
  - Hepatic cytolysis [Recovered/Resolved]
  - Rash maculo-papular [Recovered/Resolved]

NARRATIVE: CASE EVENT DATE: 20250522
